FAERS Safety Report 5881123-7 (Version None)
Quarter: 2008Q3

REPORT INFORMATION
  Report Type: 
  Country: None (occurrence: None)
  Receive Date: 20080912
  Receipt Date: 20080619
  Transmission Date: 20090109
  Serious: No
  Sender: FDA-Public Use
  Company Number: US-ABBOTT-08P-163-0458693-00

PATIENT
  Sex: Male
  Weight: 68.1 kg

DRUGS (6)
  1. HUMIRA [Suspect]
     Indication: PSORIASIS
     Route: 058
     Dates: start: 20080602
  2. HUMIRA [Suspect]
     Indication: PSORIATIC ARTHROPATHY
  3. METHOTREXATE [Concomitant]
     Indication: PSORIATIC ARTHROPATHY
     Route: 048
     Dates: start: 20080401
  4. METHOTREXATE [Concomitant]
     Indication: PSORIASIS
  5. HYDROXYCHLOROQUINE [Concomitant]
     Indication: PSORIATIC ARTHROPATHY
  6. INDOCET [Concomitant]
     Indication: PAIN
     Route: 048

REACTIONS (5)
  - HYPOAESTHESIA [None]
  - MUSCULAR WEAKNESS [None]
  - PYREXIA [None]
  - TREMOR [None]
  - VIRAL INFECTION [None]
